FAERS Safety Report 5872786-0 (Version None)
Quarter: 2008Q3

REPORT INFORMATION
  Report Type: 
  Country: None (occurrence: None)
  Receive Date: 20080905
  Receipt Date: 20080825
  Transmission Date: 20090109
  Serious: Yes (Hospitalization, Other)
  Sender: FDA-Public Use
  Company Number: US-PFIZER INC-2008047572

PATIENT
  Sex: Female
  Weight: 100 kg

DRUGS (1)
  1. CHANTIX [Suspect]
     Indication: SMOKING CESSATION THERAPY
     Dates: start: 20080201, end: 20080401

REACTIONS (39)
  - ABDOMINAL PAIN UPPER [None]
  - ADVERSE EVENT [None]
  - ALANINE AMINOTRANSFERASE INCREASED [None]
  - ANAEMIA [None]
  - ANGINA PECTORIS [None]
  - ANXIETY [None]
  - ARTHRALGIA [None]
  - ASPARTATE AMINOTRANSFERASE INCREASED [None]
  - BLOOD ALKALINE PHOSPHATASE INCREASED [None]
  - BLOOD GLUCOSE INCREASED [None]
  - BLOOD URINE PRESENT [None]
  - CHEST PAIN [None]
  - CONSTIPATION [None]
  - CONVERSION DISORDER [None]
  - DEPRESSED MOOD [None]
  - DRUG INTOLERANCE [None]
  - DYSPNOEA [None]
  - DYSURIA [None]
  - EPSTEIN-BARR VIRUS ANTIBODY POSITIVE [None]
  - FATIGUE [None]
  - FEELING ABNORMAL [None]
  - FLANK PAIN [None]
  - FLUID RETENTION [None]
  - GAIT DISTURBANCE [None]
  - HAEMATURIA [None]
  - HAEMORRHAGE [None]
  - HEPATIC ENZYME INCREASED [None]
  - IMPAIRED WORK ABILITY [None]
  - MALAISE [None]
  - OEDEMA [None]
  - PAIN [None]
  - PALPITATIONS [None]
  - PULMONARY OEDEMA [None]
  - SUICIDAL IDEATION [None]
  - TEARFULNESS [None]
  - UNEVALUABLE EVENT [None]
  - URINE OUTPUT DECREASED [None]
  - WEIGHT INCREASED [None]
  - WHITE BLOOD CELL COUNT INCREASED [None]
